FAERS Safety Report 5267366-4 (Version None)
Quarter: 2007Q1

REPORT INFORMATION
  Report Type: 
  Country: None (occurrence: None)
  Receive Date: 20070316
  Receipt Date: 20070307
  Transmission Date: 20070707
  Serious: Yes (Hospitalization)
  Sender: FDA-Public Use
  Company Number: 2006SE06126

PATIENT
  Age: 21156 Day
  Sex: Male

DRUGS (5)
  1. BLOPRESS TABLETS 8 [Suspect]
     Indication: HYPERTENSION
     Route: 048
     Dates: start: 20041008, end: 20061101
  2. ASPIRIN [Concomitant]
     Route: 048
     Dates: start: 19970421
  3. MEVAN [Concomitant]
     Route: 048
     Dates: start: 20010207
  4. SENNOSIDE [Concomitant]
     Indication: CONSTIPATION
     Route: 048
     Dates: start: 20060425
  5. GASTER [Concomitant]
     Indication: GASTRITIS
     Route: 048
     Dates: start: 20060427

REACTIONS (1)
  - INTERSTITIAL LUNG DISEASE [None]
